FAERS Safety Report 8563850-6 (Version None)
Quarter: 2012Q3

REPORT INFORMATION
  Report Type: 
  Country: None (occurrence: None)
  Receive Date: 20120727
  Receipt Date: 20120727
  Transmission Date: 20120928
  Serious: Yes (Other)
  Sender: FDA-Public Use
  Company Number: None

PATIENT
  Age: 13 Year
  Sex: Female
  Weight: 54.4316 kg

DRUGS (1)
  1. AMLODIPINE BESYLATE [Suspect]
     Indication: PULMONARY ARTERIAL HYPERTENSION
     Dosage: 5MG QD PO
     Route: 048
     Dates: start: 20070401, end: 20070415

REACTIONS (5)
  - PRODUCT SUBSTITUTION ISSUE [None]
  - FATIGUE [None]
  - NAUSEA [None]
  - DIZZINESS [None]
  - MIGRAINE [None]
